FAERS Safety Report 5340411-3 (Version None)
Quarter: 2007Q2

REPORT INFORMATION
  Report Type: 
  Country: None (occurrence: None)
  Receive Date: 20070405
  Receipt Date: 20061220
  Transmission Date: 20071010
  Serious: No
  Sender: FDA-Public Use
  Company Number: US200612003674

PATIENT
  Age: 36 Year
  Sex: Female

DRUGS (2)
  1. CYMBALTA [Suspect]
     Indication: FIBROMYALGIA
     Dosage: 30 MG, EACH EVENING
     Dates: start: 20061218
  2. QVAR /UNK/ (BELCOMETASONE DIPROPIONATE) [Concomitant]

REACTIONS (2)
  - PARAESTHESIA [None]
  - SWELLING FACE [None]
